FAERS Safety Report 23838113 (Version 4)
Quarter: 2025Q3

REPORT INFORMATION
  Report Type: Spontaneous
  Country: US (occurrence: US)
  Receive Date: 20240509
  Receipt Date: 20250905
  Transmission Date: 20251021
  Serious: No
  Sender: SANOFI AVENTIS
  Company Number: US-SA-SAC20240507000199

PATIENT
  Age: 74 Year
  Sex: Male

DRUGS (19)
  1. DUPIXENT [Suspect]
     Active Substance: DUPILUMAB
     Indication: Dermatitis atopic
     Dosage: 300 MG, QOW
     Route: 058
     Dates: start: 20220324
  2. DUPIXENT [Suspect]
     Active Substance: DUPILUMAB
     Indication: Asthma
  3. ALBUTEROL SULFATE [Concomitant]
     Active Substance: ALBUTEROL SULFATE
  4. BREO ELLIPTA [Concomitant]
     Active Substance: FLUTICASONE FUROATE\VILANTEROL TRIFENATATE
  5. HYDROCHLOROTHIAZIDE [Concomitant]
     Active Substance: HYDROCHLOROTHIAZIDE
  6. CARVEDILOL [Concomitant]
     Active Substance: CARVEDILOL
  7. METHYLPREDNISOLONE [Concomitant]
     Active Substance: METHYLPREDNISOLONE
  8. GABAPENTIN [Concomitant]
     Active Substance: GABAPENTIN
  9. IPRATROPIUM [Concomitant]
     Active Substance: IPRATROPIUM
  10. KETOROLAC [Concomitant]
     Active Substance: KETOROLAC TROMETHAMINE
  11. MESALAMINE [Concomitant]
     Active Substance: MESALAMINE
  12. PREDNISOLONE [Concomitant]
     Active Substance: PREDNISOLONE
  13. PREDNISOLONE [Concomitant]
     Active Substance: PREDNISOLONE
  14. LOSARTAN POTASSIUM [Concomitant]
     Active Substance: LOSARTAN POTASSIUM
  15. ATORVASTATIN CALCIUM [Concomitant]
     Active Substance: ATORVASTATIN CALCIUM
  16. CLOBETASOL PROPIONATE [Concomitant]
     Active Substance: CLOBETASOL PROPIONATE
  17. OMEPRAZOLE [Concomitant]
     Active Substance: OMEPRAZOLE
  18. METANX [Concomitant]
     Active Substance: LEVOMEFOLATE CALCIUM\METHYLCOBALAMIN\PYRIDOXAL PHOSPHATE ANHYDROUS
  19. HYDROCHLOROTHIAZIDE [Concomitant]
     Active Substance: HYDROCHLOROTHIAZIDE

REACTIONS (6)
  - Loss of personal independence in daily activities [Unknown]
  - Eczema [Unknown]
  - Asthma [Unknown]
  - Drug ineffective [Unknown]
  - Dermatitis atopic [Unknown]
  - Oral herpes [Unknown]
